FAERS Safety Report 23274998 (Version 1)
Quarter: 2023Q4

REPORT INFORMATION
  Report Type: Spontaneous
  Country: US (occurrence: US)
  Receive Date: 20231208
  Receipt Date: 20231208
  Transmission Date: 20240109
  Serious: No
  Sender: FDA-Public Use
  Company Number: US-PHARMAESSENTIA CORPORATION-US-2023-PEC-002352

PATIENT
  Sex: Female

DRUGS (1)
  1. BESREMI [Suspect]
     Active Substance: ROPEGINTERFERON ALFA-2B-NJFT
     Indication: Polycythaemia
     Dosage: 250 MCG, Q2W
     Route: 058
     Dates: start: 20220901

REACTIONS (5)
  - Off label use [Unknown]
  - Fear of injection [Unknown]
  - Alopecia [Unknown]
  - Fatigue [Unknown]
  - Injection site pain [Unknown]
